FAERS Safety Report 22367809 (Version 2)
Quarter: 2023Q2

REPORT INFORMATION
  Report Type: Spontaneous
  Country: BR (occurrence: BR)
  Receive Date: 20230525
  Receipt Date: 20230530
  Transmission Date: 20230722
  Serious: Yes (Other)
  Sender: FDA-Public Use
  Company Number: BR-TAKEDA-2023TUS051289

PATIENT
  Sex: Male

DRUGS (5)
  1. DEXILANT [Suspect]
     Active Substance: DEXLANSOPRAZOLE
     Indication: Reflux gastritis
     Dosage: 1 DOSAGE FORM, QD
     Route: 048
     Dates: start: 20230401, end: 20230517
  2. DEXILANT [Suspect]
     Active Substance: DEXLANSOPRAZOLE
     Indication: Dyspepsia
  3. DEXILANT [Suspect]
     Active Substance: DEXLANSOPRAZOLE
     Indication: Gastrooesophageal reflux disease
  4. MOTILIUM [Concomitant]
     Active Substance: DOMPERIDONE
     Dosage: 10 MILLIGRAM, TID
     Route: 048
  5. PASALIX [Concomitant]
     Dosage: 1 DOSAGE FORM, Q12H
     Route: 048

REACTIONS (13)
  - Hypoacusis [Unknown]
  - Off label use [Unknown]
  - Psychotic disorder [Unknown]
  - Blister [Unknown]
  - Malaise [Unknown]
  - Thinking abnormal [Unknown]
  - Self-injurious ideation [Unknown]
  - Fear [Unknown]
  - Anxiety [Unknown]
  - Acne [Unknown]
  - Pruritus [Unknown]
  - Feeling abnormal [Not Recovered/Not Resolved]
  - Dizziness [Unknown]
